FAERS Safety Report 10102480 (Version 2)
Quarter: 2014Q3

REPORT INFORMATION
  Report Type: Other
  Country: US (occurrence: US)
  Receive Date: 20140424
  Receipt Date: 20140729
  Transmission Date: 20150326
  Serious: Yes (Hospitalization, Other)
  Sender: FDA-Public Use
  Company Number: US-GSKPPD-2014GSK000349

PATIENT
  Age: 54 Year
  Sex: Male
  Weight: 76.59 kg

DRUGS (6)
  1. PLAVIX [Concomitant]
     Active Substance: CLOPIDOGREL BISULFATE
     Dates: start: 2003
  2. AVANDIA [Suspect]
     Active Substance: ROSIGLITAZONE MALEATE
     Indication: DIABETES MELLITUS
     Dosage: DATES OF AVANDIA USE COULD NOT BE CONFIRMED IN RECORDS REVIEWED
     Route: 048
  3. TENORMIN [Concomitant]
     Active Substance: ATENOLOL
     Dates: start: 2003
  4. NORVASC [Concomitant]
     Active Substance: AMLODIPINE BESYLATE
     Dates: start: 2003
  5. ASPIRIN. [Concomitant]
     Active Substance: ASPIRIN
     Dates: start: 20030727
  6. LIPITOR [Concomitant]
     Active Substance: ATORVASTATIN CALCIUM

REACTIONS (2)
  - Myocardial infarction [None]
  - Angina unstable [Recovered/Resolved]

NARRATIVE: CASE EVENT DATE: 20030724
